FAERS Safety Report 14580682 (Version 1)
Quarter: 2018Q1

REPORT INFORMATION
  Report Type: Spontaneous
  Country: US (occurrence: US)
  Receive Date: 20180228
  Receipt Date: 20180228
  Transmission Date: 20180509
  Serious: Yes (Other)
  Sender: FDA-Public Use
  Company Number: US-TEVA-2018-US-863073

PATIENT
  Age: 70 Year
  Sex: Female
  Weight: 77 kg

DRUGS (1)
  1. AZITHROMYCIN ANHYDROUS. [Suspect]
     Active Substance: AZITHROMYCIN ANHYDROUS
     Indication: PROPHYLAXIS
     Dates: start: 201707

REACTIONS (11)
  - Dizziness [Unknown]
  - Vomiting [Unknown]
  - Pharyngeal oedema [Unknown]
  - Fatigue [Unknown]
  - Balance disorder [Unknown]
  - Headache [Unknown]
  - Palpitations [Unknown]
  - Pharyngitis [Unknown]
  - Loss of consciousness [Unknown]
  - Diarrhoea [Unknown]
  - Dyspnoea [Unknown]

NARRATIVE: CASE EVENT DATE: 201707
